FAERS Safety Report 12789138 (Version 2)
Quarter: 2016Q3

REPORT INFORMATION
  Report Type: Spontaneous
  Country: US (occurrence: US)
  Receive Date: 20160928
  Receipt Date: 20160929
  Transmission Date: 20161109
  Serious: No
  Sender: FDA-Public Use
  Company Number: US-PFIZER INC-2016453401

PATIENT
  Age: 58 Year
  Sex: Female

DRUGS (3)
  1. PROGESTERONE. [Suspect]
     Active Substance: PROGESTERONE
  2. ESTRADIOL. [Suspect]
     Active Substance: ESTRADIOL
  3. PREMPRO [Suspect]
     Active Substance: ESTROGENS, CONJUGATED\MEDROXYPROGESTERONE ACETATE
     Dosage: 0.3 MG, UNK

REACTIONS (3)
  - Alopecia [Unknown]
  - Anxiety [Unknown]
  - Sleep disorder [Unknown]
